FAERS Safety Report 9362046 (Version 4)
Quarter: 2014Q2

REPORT INFORMATION
  Report Type: Spontaneous
  Country: US (occurrence: US)
  Receive Date: 20130621
  Receipt Date: 20140521
  Transmission Date: 20141212
  Serious: Yes (Hospitalization)
  Sender: FDA-Public Use
  Company Number: US-B.I. PHARMACEUTICALS,INC./RIDGEFIELD-2013-BI-17416BP

PATIENT
  Age: 65 Year
  Sex: Female
  Weight: 99.7 kg

DRUGS (11)
  1. PRADAXA [Suspect]
     Indication: ANTICOAGULANT THERAPY
     Route: 048
     Dates: start: 20110706, end: 20120619
  2. CELEXA [Concomitant]
     Route: 065
     Dates: start: 2011
  3. CRANBERRY TABLETS [Concomitant]
     Route: 065
     Dates: start: 2012
  4. CRESTOR [Concomitant]
     Route: 065
     Dates: start: 2012
  5. LANTUS [Concomitant]
     Route: 065
     Dates: start: 2009
  6. LYRICA [Concomitant]
     Route: 065
     Dates: start: 2012
  7. PROTONIX [Concomitant]
     Route: 065
     Dates: start: 2007
  8. SPIRONOLACTONE [Concomitant]
     Route: 065
     Dates: start: 2011
  9. VITAMIN D [Concomitant]
     Route: 065
     Dates: start: 2012
  10. BUMEX [Concomitant]
     Route: 065
  11. ASPIRIN [Concomitant]
     Route: 065
     Dates: end: 20120619

REACTIONS (3)
  - Gastrointestinal haemorrhage [Recovered/Resolved]
  - Haemorrhagic anaemia [Unknown]
  - International normalised ratio increased [Unknown]
